FAERS Safety Report 23840482 (Version 1)
Quarter: 2024Q2

REPORT INFORMATION
  Report Type: Spontaneous
  Country: DE (occurrence: None)
  Receive Date: 20240510
  Receipt Date: 20240510
  Transmission Date: 20240716
  Serious: Yes (Death)
  Sender: FDA-Public Use
  Company Number: 2024A108077

PATIENT

DRUGS (3)
  1. ONDEXXYA [Suspect]
     Active Substance: ANDEXANET ALFA
     Indication: Inhibitory drug interaction
     Route: 042
  2. ONDEXXYA [Concomitant]
     Active Substance: ANDEXANET ALFA
  3. ONDEXXYA [Concomitant]
     Active Substance: ANDEXANET ALFA

REACTIONS (1)
  - Embolism [Fatal]
